FAERS Safety Report 21068666 (Version 1)
Quarter: 2022Q3

REPORT INFORMATION
  Report Type: Spontaneous
  Country: JP (occurrence: JP)
  Receive Date: 20220712
  Receipt Date: 20220712
  Transmission Date: 20221027
  Serious: Yes (Other)
  Sender: FDA-Public Use
  Company Number: JP-PFIZER INC-PV202200019767

PATIENT
  Age: 55 Year
  Sex: Female

DRUGS (3)
  1. CELECOXIB [Suspect]
     Active Substance: CELECOXIB
     Route: 048
  2. RITUXIMAB [Suspect]
     Active Substance: RITUXIMAB
  3. FAMOTIDINE [Suspect]
     Active Substance: FAMOTIDINE
     Route: 048

REACTIONS (3)
  - Erythema multiforme [Unknown]
  - Rash [Unknown]
  - Urticaria [Unknown]
